FAERS Safety Report 8093089-2 (Version None)
Quarter: 2012Q1

REPORT INFORMATION
  Report Type: 
  Country: None (occurrence: None)
  Receive Date: 20120128
  Receipt Date: 20111021
  Transmission Date: 20120608
  Serious: No
  Sender: FDA-Public Use
  Company Number: US-ABBOTT-11P-163-0839862-00

PATIENT
  Age: 47 Year
  Sex: Male

DRUGS (13)
  1. SOMA [Concomitant]
     Indication: MUSCLE SPASMS
     Dosage: PRN
  2. OXYCONTIN [Concomitant]
     Indication: PAIN
  3. PERCOCET [Concomitant]
     Indication: PAIN
  4. VIT B COMPLEX [Concomitant]
     Indication: PRODUCT USED FOR UNKNOWN INDICATION
     Dosage: DAILY
  5. OXYCONTIN [Concomitant]
  6. MILK THISTLE [Concomitant]
     Indication: LIVER DISORDER
  7. BACTRIM [Concomitant]
     Indication: CYST REMOVAL
  8. CELEBREX [Concomitant]
     Indication: PAIN
  9. LORTAB [Concomitant]
     Indication: PAIN
     Dosage: 10/500MG
  10. VIT C [Concomitant]
     Indication: PRODUCT USED FOR UNKNOWN INDICATION
     Dosage: DAILY
  11. VITAMIN D [Concomitant]
     Indication: PRODUCT USED FOR UNKNOWN INDICATION
  12. VOLTAREN [Concomitant]
     Indication: ARTHRALGIA
     Dosage: GEL 1% PRN
  13. HUMIRA [Suspect]
     Indication: PSORIATIC ARTHROPATHY
     Dates: start: 20110620

REACTIONS (8)
  - PAIN [None]
  - INSOMNIA [None]
  - DIARRHOEA [None]
  - POOR QUALITY SLEEP [None]
  - RESPIRATORY TRACT CONGESTION [None]
  - COUGH [None]
  - SNEEZING [None]
  - ORAL DISORDER [None]
